FAERS Safety Report 24875909 (Version 1)
Quarter: 2025Q1

REPORT INFORMATION
  Report Type: Spontaneous
  Country: US (occurrence: US)
  Receive Date: 20250122
  Receipt Date: 20250122
  Transmission Date: 20250409
  Serious: Yes (Other)
  Sender: JOHNSON AND JOHNSON
  Company Number: US-JNJFOC-20250133824

PATIENT
  Age: 80 Year
  Sex: Male

DRUGS (1)
  1. RYBREVANT [Suspect]
     Active Substance: AMIVANTAMAB-VMJW
     Indication: Lung neoplasm malignant
     Route: 042
     Dates: start: 20240301, end: 20240312

REACTIONS (3)
  - Lung neoplasm malignant [Not Recovered/Not Resolved]
  - Paranoia [Not Recovered/Not Resolved]
  - Nail disorder [Not Recovered/Not Resolved]
